FAERS Safety Report 4451279-1 (Version None)
Quarter: 2004Q3

REPORT INFORMATION
  Report Type: 
  Country: None (occurrence: None)
  Receive Date: 20040913
  Receipt Date: 20040712
  Transmission Date: 20050211
  Serious: No
  Sender: FDA-Public Use
  Company Number: 2004-BP-05577BP

PATIENT
  Age: 76 Year
  Sex: Female

DRUGS (14)
  1. SPIRIVA [Suspect]
     Indication: ASTHMA
     Dosage: 18 MCG (18 MCG), IH
     Route: 055
     Dates: start: 20040521, end: 20040707
  2. SPIRIVA [Suspect]
     Indication: BRONCHITIS CHRONIC
     Dosage: 18 MCG (18 MCG), IH
     Route: 055
     Dates: start: 20040521, end: 20040707
  3. SPIRIVA [Suspect]
     Indication: CHRONIC OBSTRUCTIVE AIRWAYS DISEASE
     Dosage: 18 MCG (18 MCG), IH
     Route: 055
     Dates: start: 20040521, end: 20040707
  4. SPIRIVA [Suspect]
     Indication: EMPHYSEMA
     Dosage: 18 MCG (18 MCG), IH
     Route: 055
     Dates: start: 20040521, end: 20040707
  5. ATROVENT [Concomitant]
  6. FORADIL [Concomitant]
  7. XOPENEX [Concomitant]
  8. PREDNISONE [Concomitant]
  9. XANAX [Concomitant]
  10. ZOLOFT [Concomitant]
  11. SYNTHROID [Concomitant]
  12. VIOXX [Concomitant]
  13. HYZAAR [Concomitant]
  14. LIPITOR [Concomitant]

REACTIONS (3)
  - COUGH [None]
  - HEART RATE DECREASED [None]
  - OROPHARYNGEAL SWELLING [None]
